FAERS Safety Report 8243765-3 (Version None)
Quarter: 2012Q1

REPORT INFORMATION
  Report Type: 
  Country: None (occurrence: None)
  Receive Date: 20120329
  Receipt Date: 20110824
  Transmission Date: 20120608
  Serious: No
  Sender: FDA-Public Use
  Company Number: US-MYLANLABS-2011S1018677

PATIENT

DRUGS (1)
  1. EMSAM [Suspect]

REACTIONS (3)
  - VISUAL ACUITY REDUCED [None]
  - FEAR [None]
  - DIPLOPIA [None]
